FAERS Safety Report 5578117-8 (Version None)
Quarter: 2007Q4

REPORT INFORMATION
  Report Type: 
  Country: None (occurrence: None)
  Receive Date: 20071227
  Receipt Date: 20071211
  Transmission Date: 20080405
  Serious: Yes (Hospitalization)
  Sender: FDA-Public Use
  Company Number: DSA_31055_2007

PATIENT
  Sex: Male
  Weight: 70 kg

DRUGS (7)
  1. LORAZEPAM [Suspect]
     Indication: ANXIETY
     Dosage: (2 MG BID ORAL), (8 TO 12 ML A DAY, ORAL)
     Route: 048
     Dates: start: 19821201, end: 20010101
  2. LORAZEPAM [Suspect]
     Indication: INSOMNIA
     Dosage: (2 MG BID ORAL), (8 TO 12 ML A DAY, ORAL)
     Route: 048
     Dates: start: 19821201, end: 20010101
  3. LORAZEPAM [Suspect]
     Indication: NERVOUSNESS
     Dosage: (2 MG BID ORAL), (8 TO 12 ML A DAY, ORAL)
     Route: 048
     Dates: start: 19821201, end: 20010101
  4. LORAZEPAM [Suspect]
     Indication: ANXIETY
     Dosage: (2 MG BID ORAL), (8 TO 12 ML A DAY, ORAL)
     Route: 048
     Dates: start: 20010101
  5. LORAZEPAM [Suspect]
     Indication: INSOMNIA
     Dosage: (2 MG BID ORAL), (8 TO 12 ML A DAY, ORAL)
     Route: 048
     Dates: start: 20010101
  6. LORAZEPAM [Suspect]
     Indication: NERVOUSNESS
     Dosage: (2 MG BID ORAL), (8 TO 12 ML A DAY, ORAL)
     Route: 048
     Dates: start: 20010101
  7. CAPTOPRIL [Concomitant]

REACTIONS (10)
  - ANXIETY [None]
  - DRUG DEPENDENCE [None]
  - DRUG WITHDRAWAL SYNDROME [None]
  - DRY MOUTH [None]
  - DYSPNOEA [None]
  - FEELING ABNORMAL [None]
  - INTENTIONAL DRUG MISUSE [None]
  - MALAISE [None]
  - MENTAL DISORDER [None]
  - TACHYCARDIA [None]
